FAERS Safety Report 7972458 (Version 3)
Quarter: 2014Q1

REPORT INFORMATION
  Report Type: Spontaneous
  Country: US (occurrence: US)
  Receive Date: 20110603
  Receipt Date: 20140121
  Transmission Date: 20141002
  Serious: Yes (Hospitalization)
  Sender: FDA-Public Use
  Company Number: US-BAYER-2010-003049

PATIENT
  Age: 26 Year
  Sex: Female
  Weight: 58.96 kg

DRUGS (6)
  1. YASMIN [Suspect]
     Dosage: UNK
     Dates: start: 2004, end: 2008
  2. YAZ [Suspect]
     Dosage: UNK
     Dates: start: 2004, end: 2007
  3. IBUPROFEN [Concomitant]
     Indication: PAIN
     Dosage: 600 MG, PRN
  4. LEVOTHYROXINE [Concomitant]
     Indication: HYPOTHYROIDISM
     Dosage: 0.125 MG, QD
     Route: 048
     Dates: start: 2000, end: 2010
  5. METFORMIN [Concomitant]
     Indication: POLYCYSTIC OVARIES
     Dosage: 850 MG, BID
     Route: 048
     Dates: start: 2005, end: 200706
  6. GLUCOPHAGE [Concomitant]
     Indication: POLYCYSTIC OVARIES

REACTIONS (2)
  - Gallbladder injury [None]
  - Cholecystitis chronic [None]
